FAERS Safety Report 9318296 (Version 1)
Quarter: 2013Q2

REPORT INFORMATION
  Report Type: Spontaneous
  Country: US (occurrence: US)
  Receive Date: 20130530
  Receipt Date: 20130530
  Transmission Date: 20140414
  Serious: No
  Sender: FDA-Public Use
  Company Number: US-NOVEN-13US006558

PATIENT
  Sex: 0

DRUGS (2)
  1. DAYTRANA [Suspect]
     Indication: ATTENTION DEFICIT/HYPERACTIVITY DISORDER
     Dosage: 20 MG, UNK
     Route: 062
     Dates: start: 2012, end: 201303
  2. DAYTRANA [Suspect]
     Dosage: 30 MG, UNK
     Route: 062
     Dates: start: 201303

REACTIONS (4)
  - Impulsive behaviour [Not Recovered/Not Resolved]
  - Aggression [Not Recovered/Not Resolved]
  - Irritability [None]
  - Incorrect drug administration duration [Not Recovered/Not Resolved]
